FAERS Safety Report 18511466 (Version 1)
Quarter: 2020Q4

REPORT INFORMATION
  Report Type: Spontaneous
  Country: US (occurrence: US)
  Receive Date: 20201117
  Receipt Date: 20201117
  Transmission Date: 20210114
  Serious: Yes (Other)
  Sender: FDA-Public Use
  Company Number: US-SUPERNUS PHARMACEUTICALS, INC.-2020SUP00764

PATIENT
  Age: 28 Year
  Sex: Male

DRUGS (1)
  1. OXTELLAR XR [Suspect]
     Active Substance: OXCARBAZEPINE
     Dosage: 1200 MG, 1X/DAY
     Route: 048

REACTIONS (14)
  - Drug ineffective [Unknown]
  - Nervousness [Unknown]
  - Anxiety [Unknown]
  - Simple partial seizures [Unknown]
  - Disorientation [Unknown]
  - Focal dyscognitive seizures [Unknown]
  - Partial seizures with secondary generalisation [Unknown]
  - Somnolence [Unknown]
  - Seizure [Unknown]
  - Movement disorder [Unknown]
  - Cognitive disorder [Unknown]
  - Balance disorder [Unknown]
  - Hyponatraemia [Unknown]
  - Memory impairment [Unknown]
